FAERS Safety Report 23614353 (Version 2)
Quarter: 2024Q2

REPORT INFORMATION
  Report Type: Report from Study
  Country: CA (occurrence: CA)
  Receive Date: 20240311
  Receipt Date: 20240430
  Transmission Date: 20240716
  Serious: Yes (Hospitalization)
  Sender: FDA-Public Use
  Company Number: CA-ABBVIE-5671393

PATIENT
  Sex: Female

DRUGS (1)
  1. RINVOQ [Suspect]
     Active Substance: UPADACITINIB
     Indication: Rheumatoid arthritis
     Dosage: FORM STRENGTH: 15 MG
     Route: 048
     Dates: start: 20200224

REACTIONS (9)
  - Lower respiratory tract infection [Unknown]
  - Pneumonia [Unknown]
  - COVID-19 [Unknown]
  - Skin ulcer [Unknown]
  - Rash [Unknown]
  - Scar pain [Unknown]
  - Loss of personal independence in daily activities [Unknown]
  - Gait disturbance [Unknown]
  - Blood pressure fluctuation [Unknown]
